FAERS Safety Report 14826616 (Version 2)
Quarter: 2018Q2

REPORT INFORMATION
  Report Type: Spontaneous
  Country: US (occurrence: US)
  Receive Date: 20180430
  Receipt Date: 20180516
  Transmission Date: 20180711
  Serious: Yes (Hospitalization)
  Sender: FDA-Public Use
  Company Number: US-ABBVIE-18K-163-2338883-00

PATIENT
  Age: 42 Year
  Sex: Male
  Weight: 90.35 kg

DRUGS (2)
  1. HUMIRA [Suspect]
     Active Substance: ADALIMUMAB
     Dosage: ONE WEEK LATER
     Route: 058
     Dates: start: 201606, end: 201801
  2. HUMIRA [Suspect]
     Active Substance: ADALIMUMAB
     Indication: PSORIASIS
     Route: 058
     Dates: start: 201606, end: 201606

REACTIONS (25)
  - Abscess [Recovering/Resolving]
  - Protein urine present [Recovering/Resolving]
  - Hepatic pain [Recovering/Resolving]
  - Liver abscess [Recovering/Resolving]
  - Weight decreased [Not Recovered/Not Resolved]
  - Oedematous kidney [Recovering/Resolving]
  - Renal abscess [Recovering/Resolving]
  - Pneumonia [Recovering/Resolving]
  - Urine output decreased [Recovering/Resolving]
  - Gait disturbance [Recovering/Resolving]
  - Staphylococcal infection [Recovered/Resolved with Sequelae]
  - Tremor [Recovering/Resolving]
  - Hypertension [Recovering/Resolving]
  - Bilirubin urine [Recovering/Resolving]
  - Blood urine present [Recovering/Resolving]
  - Pyrexia [Recovered/Resolved]
  - Decreased appetite [Recovering/Resolving]
  - Blood creatine phosphokinase increased [Recovering/Resolving]
  - Pyelonephritis [Recovered/Resolved]
  - Abdominal pain lower [Recovering/Resolving]
  - Pain in extremity [Recovering/Resolving]
  - Pulmonary oedema [Recovering/Resolving]
  - White blood cell count decreased [Recovering/Resolving]
  - Oxygen saturation decreased [Recovering/Resolving]
  - Rhabdomyolysis [Recovering/Resolving]

NARRATIVE: CASE EVENT DATE: 201802
